FAERS Safety Report 5195140-6 (Version None)
Quarter: 2006Q4

REPORT INFORMATION
  Report Type: 
  Country: None (occurrence: None)
  Receive Date: 20061229
  Receipt Date: 20060127
  Transmission Date: 20070319
  Serious: Yes (Hospitalization, Other)
  Sender: FDA-Public Use
  Company Number: US-PFIZER INC-2006016228

PATIENT
  Sex: Female

DRUGS (2)
  1. BEXTRA [Suspect]
  2. VIOXX [Suspect]
     Route: 048

REACTIONS (2)
  - HEART INJURY [None]
  - MYOCARDIAL INFARCTION [None]
